FAERS Safety Report 6062679-0 (Version None)
Quarter: 2009Q1

REPORT INFORMATION
  Report Type: 
  Country: None (occurrence: None)
  Receive Date: 20090203
  Receipt Date: 20090126
  Transmission Date: 20090719
  Serious: Yes (Death, Hospitalization)
  Sender: FDA-Public Use
  Company Number: US-AMGEN-QUU330480

PATIENT
  Sex: Female

DRUGS (1)
  1. ENBREL [Suspect]
     Indication: RHEUMATOID ARTHRITIS
     Route: 058
     Dates: start: 20020522, end: 20090112

REACTIONS (4)
  - BLOOD PRESSURE ABNORMAL [None]
  - DEATH [None]
  - HIP FRACTURE [None]
  - RESPIRATORY FAILURE [None]
